FAERS Safety Report 9715728 (Version 1)
Quarter: 2013Q4

REPORT INFORMATION
  Report Type: Report from Study
  Country: US (occurrence: US)
  Receive Date: 20131127
  Receipt Date: 20131127
  Transmission Date: 20140711
  Serious: Yes (Other)
  Sender: FDA-Public Use
  Company Number: US-ROCHE-1309636

PATIENT
  Age: 7 Year
  Sex: Female
  Weight: 25.5 kg

DRUGS (1)
  1. NUTROPIN [Suspect]
     Indication: SMALL FOR DATES BABY
     Dosage: DOSE : 0.15 MG/KG/WEEK.
     Route: 058

REACTIONS (2)
  - Growth retardation [Unknown]
  - Insulin-like growth factor increased [Unknown]
